FAERS Safety Report 4344686-9 (Version None)
Quarter: 2004Q2

REPORT INFORMATION
  Report Type: 
  Country: None (occurrence: None)
  Receive Date: 20040419
  Receipt Date: 20040412
  Transmission Date: 20050107
  Serious: Yes (Hospitalization)
  Sender: FDA-Public Use
  Company Number: 2004-04-0520

PATIENT
  Age: 84 Year
  Sex: Male

DRUGS (7)
  1. FLUTAMIDE [Suspect]
     Indication: PROSTATE CANCER
     Dosage: 250 MG ORAL
     Route: 048
     Dates: start: 20010209
  2. LEUPRORELIN ACETATE INJECTABLES [Suspect]
     Indication: PROSTATE CANCER
     Dosage: 11.25-3.75 MG SUBCUTANEOUS
     Route: 058
     Dates: start: 20010209, end: 20040202
  3. AMLODIPINE BESYLATE [Concomitant]
  4. VOGLIBOSE [Concomitant]
  5. DISTIGMINE BROMIDE [Concomitant]
  6. CIPROFLOXACIN HYDROCHLORIDE [Concomitant]
  7. TAMSULOSIN HYDROCHLORIDE [Concomitant]

REACTIONS (3)
  - ACUTE MYOCARDIAL INFARCTION [None]
  - EMOTIONAL DISTRESS [None]
  - PLEURAL EFFUSION [None]
